FAERS Safety Report 7915876-0 (Version None)
Quarter: 2011Q4

REPORT INFORMATION
  Report Type: 
  Country: None (occurrence: None)
  Receive Date: 20111115
  Receipt Date: 20111110
  Transmission Date: 20120403
  Serious: Yes (Hospitalization)
  Sender: FDA-Public Use
  Company Number: TR-ABBOTT-11P-161-0873295-00

PATIENT
  Age: 10 Year
  Sex: Female

DRUGS (1)
  1. VALPROATE SODIUM [Suspect]
     Indication: EPILEPSY

REACTIONS (5)
  - MESENTERIC VEIN THROMBOSIS [None]
  - PERIPANCREATIC FLUID COLLECTION [None]
  - PSEUDOCYST [None]
  - ABDOMINAL PAIN [None]
  - PANCREATITIS ACUTE [None]
